FAERS Safety Report 8289482-5 (Version None)
Quarter: 2012Q2

REPORT INFORMATION
  Report Type: 
  Country: None (occurrence: None)
  Receive Date: 20120417
  Receipt Date: 20120409
  Transmission Date: 20120825
  Serious: Yes (Hospitalization)
  Sender: FDA-Public Use
  Company Number: CN-ASTELLAS-2012JP003133

PATIENT
  Sex: Female

DRUGS (2)
  1. TACROLIMUS [Suspect]
     Indication: LUPUS NEPHRITIS
     Dosage: 4 MG, UNKNOWN/D
     Route: 048
     Dates: start: 20111216, end: 20120406
  2. STEROID [Concomitant]
     Dosage: 17.5 MG, UNKNOWN/D
     Route: 048

REACTIONS (3)
  - PULMONARY TUBERCULOSIS [None]
  - LUNG INFECTION [None]
  - LACUNAR INFARCTION [None]
